FAERS Safety Report 18035751 (Version 1)
Quarter: 2020Q3

REPORT INFORMATION
  Report Type: Spontaneous
  Country: US (occurrence: US)
  Receive Date: 20200717
  Receipt Date: 20200717
  Transmission Date: 20201103
  Serious: Yes (Hospitalization)
  Sender: FDA-Public Use
  Company Number: None

PATIENT
  Age: 71 Year
  Sex: Female

DRUGS (22)
  1. STOOL SOFTENER (DOCUSATE) [Concomitant]
     Active Substance: DOCUSATE
  2. PREDNISONE. [Concomitant]
     Active Substance: PREDNISONE
  3. THERAPEUTIC TAB [Concomitant]
  4. FOLIC ACID. [Concomitant]
     Active Substance: FOLIC ACID
  5. ENBREL [Suspect]
     Active Substance: ETANERCEPT
     Indication: RHEUMATOID ARTHRITIS
     Route: 058
  6. METHOTREXATE. [Concomitant]
     Active Substance: METHOTREXATE
  7. DILTIAZEM. [Concomitant]
     Active Substance: DILTIAZEM
  8. ACYCLOVIR. [Concomitant]
     Active Substance: ACYCLOVIR
  9. VITC [Concomitant]
  10. SAVELLA [Concomitant]
     Active Substance: MILNACIPRAN HYDROCHLORIDE
  11. CALCIUM [Concomitant]
     Active Substance: CALCIUM
  12. IISINOPN^L [Concomitant]
  13. COLCHICINE. [Concomitant]
     Active Substance: COLCHICINE
  14. METOPROLOL. [Concomitant]
     Active Substance: METOPROLOL
  15. FUROSEMIDE. [Concomitant]
     Active Substance: FUROSEMIDE
  16. OMEPRAZOLE. [Concomitant]
     Active Substance: OMEPRAZOLE
  17. K?TA B [Concomitant]
  18. BISOPROLOL [Concomitant]
     Active Substance: BISOPROLOL
  19. VITD3 [Concomitant]
  20. KONSYL POWDER [Concomitant]
  21. PREGABALIN. [Concomitant]
     Active Substance: PREGABALIN
  22. ELIQUIS [Concomitant]
     Active Substance: APIXABAN

REACTIONS (2)
  - Chest pain [None]
  - Pericardial effusion [None]

NARRATIVE: CASE EVENT DATE: 20200716
